FAERS Safety Report 9155654 (Version 2)
Quarter: 2013Q2

REPORT INFORMATION
  Report Type: Report from Study
  Country: US (occurrence: US)
  Receive Date: 20130311
  Receipt Date: 20130521
  Transmission Date: 20140414
  Serious: Yes (Hospitalization, Other)
  Sender: FDA-Public Use
  Company Number: US-SHIRE-SPV1-2008-02844

PATIENT
  Age: 7 Year
  Sex: Male
  Weight: 26.9 kg

DRUGS (22)
  1. IDURSULFASE [Suspect]
     Indication: MUCOPOLYSACCHARIDOSIS II
     Dosage: 12 MG, 1X/WEEK
     Route: 041
     Dates: start: 20061031
  2. ACETAZOLAMIDE [Concomitant]
     Indication: HYDROCEPHALUS
     Dosage: 250 MG, 3X/DAY:TID
     Route: 048
     Dates: start: 20081128
  3. ACETAZOLAMIDE [Concomitant]
     Dosage: 125 MG, 2X/DAY:BID
     Route: 048
     Dates: start: 200809
  4. MELATONIN [Concomitant]
     Indication: SLEEP DISORDER
     Dosage: UNK UNK, UNKNOWN
     Route: 065
     Dates: start: 20080731
  5. NEURONTIN [Concomitant]
     Indication: SLEEP DISORDER
     Dosage: 50 MG, 1X/DAY:QD
     Route: 048
     Dates: start: 20080731, end: 2008
  6. NEURONTIN [Concomitant]
     Dosage: 50 MG, 1X/DAY:QD
  7. AUGMENTIN                          /00756801/ [Concomitant]
     Indication: UPPER RESPIRATORY TRACT INFECTION
     Dosage: 5 ML, 3X/DAY:TID
     Dates: start: 20080620
  8. AUGMENTIN                          /00756801/ [Concomitant]
     Indication: OTITIS MEDIA ACUTE
     Dosage: 10 ML, 2X/DAY:BID
     Dates: start: 20080620
  9. HEPARIN [Concomitant]
     Indication: ANTICOAGULANT THERAPY
     Dosage: 500 IU, 1X/WEEK
     Route: 042
  10. DIASTAT                            /00017001/ [Concomitant]
     Indication: NERVOUS SYSTEM DISORDER
     Dosage: 7.5 MG, AS REQ^D
     Route: 030
     Dates: start: 200810
  11. FERROUS SULPHATE                   /00023503/ [Concomitant]
     Indication: BLOOD IRON ABNORMAL
     Dosage: 300 MG, 1X/DAY:QD
     Route: 048
     Dates: start: 20081007
  12. FLOVENT [Concomitant]
     Indication: WHEEZING
     Dosage: 2 DF, AS REQ^D
     Route: 065
  13. FLOXACIN                           /00668101/ [Concomitant]
     Indication: EAR DISORDER
     Dosage: UNK UNK, UNKNOWN
     Route: 065
     Dates: start: 200909
  14. VANCOMYCIN [Concomitant]
     Indication: PRODUCT USED FOR UNKNOWN INDICATION
     Dosage: UNK UNK, UNKNOWN
     Route: 065
     Dates: start: 20080918
  15. CEFOTAXIM [Concomitant]
     Indication: PRODUCT USED FOR UNKNOWN INDICATION
     Dosage: UNK UNK, UNKNOWN
     Route: 065
     Dates: start: 20080919
  16. DIAMOX                             /00016901/ [Concomitant]
     Indication: PRODUCT USED FOR UNKNOWN INDICATION
     Dosage: 250 MG, 3X/DAY:TID
     Route: 065
     Dates: start: 20080919
  17. AMPICILLIN COMP [Concomitant]
     Indication: ANTI-INFECTIVE THERAPY
     Dosage: 5 ML, 3X/DAY:TID
     Route: 048
     Dates: start: 20080620
  18. AMPICILLIN COMP [Concomitant]
     Dosage: 10 ML, 2X/DAY:BID
     Route: 048
     Dates: start: 20080122
  19. HEPARIN LMW [Concomitant]
     Indication: ANTICOAGULANT THERAPY
     Dosage: 500 IU, 1X/WEEK
     Route: 042
     Dates: start: 20070130
  20. XOPENEX [Concomitant]
     Indication: RESPIRATORY DISORDER
     Dosage: 0.31 MG, 1X/DAY:QD
     Route: 055
     Dates: start: 2005
  21. PULMICORT [Concomitant]
     Indication: RESPIRATORY DISORDER
     Dosage: 0.25 MG, 2X/DAY:BID
     Route: 055
     Dates: start: 2005
  22. DEXAMETHASONE [Concomitant]
     Indication: PREMEDICATION
     Dosage: UNK, UNKNOWN
     Route: 065

REACTIONS (3)
  - Subdural haematoma [Recovering/Resolving]
  - Convulsion [Recovered/Resolved]
  - Altered state of consciousness [Recovered/Resolved]
